FAERS Safety Report 4773940-1 (Version None)
Quarter: 2005Q3

REPORT INFORMATION
  Report Type: 
  Country: None (occurrence: None)
  Receive Date: 20050920
  Receipt Date: 20050831
  Transmission Date: 20060218
  Serious: Yes (Other)
  Sender: FDA-Public Use
  Company Number: PHBS2005JP12629

PATIENT
  Sex: Female

DRUGS (7)
  1. FASTIC [Suspect]
     Indication: DIABETES MELLITUS
     Dosage: 90 MG, QD
  2. FASTIC [Suspect]
     Dosage: 270 MG, QD
  3. FASTIC [Suspect]
     Dosage: 135 MG, QD
  4. BENET [Concomitant]
  5. TAKEPRON [Concomitant]
     Dosage: 15 MG, UNK
  6. LOPEMIN [Concomitant]
  7. MARZULENE [Concomitant]
     Dosage: 2 G, UNK

REACTIONS (1)
  - LIVER DISORDER [None]
